FAERS Safety Report 4834500-7 (Version None)
Quarter: 2005Q4

REPORT INFORMATION
  Report Type: 
  Country: None (occurrence: None)
  Receive Date: 20051122
  Receipt Date: 20050106
  Transmission Date: 20060501
  Serious: No
  Sender: FDA-Public Use
  Company Number: US-BRISTOL-MYERS SQUIBB COMPANY-12816112

PATIENT
  Age: 74 Year
  Sex: Male
  Weight: 83 kg

DRUGS (9)
  1. PRAVACHOL [Suspect]
     Indication: BLOOD CHOLESTEROL INCREASED
     Dosage: INITIAL 40 MG DAILY, REDUCED TO 40 MG 5 DAYS A WEEK (SKIPPED ON MON AND THURS)
     Route: 048
     Dates: start: 20000201
  2. IMDUR [Concomitant]
  3. METOPROLOL [Concomitant]
  4. COZAAR [Concomitant]
  5. XANAX [Concomitant]
  6. MULTI-VITAMINS [Concomitant]
  7. ASCORBIC ACID [Concomitant]
  8. DOCUSATE SODIUM [Concomitant]
  9. BENEFIBER [Concomitant]

REACTIONS (1)
  - SHOULDER PAIN [None]
